FAERS Safety Report 6523134-4 (Version None)
Quarter: 2009Q4

REPORT INFORMATION
  Report Type: 
  Country: None (occurrence: None)
  Receive Date: 20091222
  Receipt Date: 20091207
  Transmission Date: 20100525
  Serious: Yes (Hospitalization)
  Sender: FDA-Public Use
  Company Number: AE-2009-313

PATIENT
  Sex: Male

DRUGS (6)
  1. FUROSEMIDE [Suspect]
  2. CITALOPRAM HYDROBROMIDE [Suspect]
     Indication: DEPRESSION
     Dosage: 20MG, QD,ORAL
     Route: 048
     Dates: start: 20070301, end: 20070301
  3. VALPROATE SODIUM [Suspect]
     Indication: DEPRESSED MOOD
     Dosage: 300MG, BID, ORAL
     Route: 048
     Dates: start: 20061101
  4. ASPIRIN [Concomitant]
  5. DIGOXIN [Concomitant]
  6. RAMIPRIL [Concomitant]

REACTIONS (2)
  - HYPONATRAEMIA [None]
  - MENTAL DISORDER [None]
